FAERS Safety Report 26126422 (Version 1)
Quarter: 2025Q4

REPORT INFORMATION
  Report Type: Spontaneous
  Country: US (occurrence: None)
  Receive Date: 20251205
  Receipt Date: 20251205
  Transmission Date: 20260118
  Serious: Yes (Other)
  Sender: FDA-CTU
  Company Number: None

PATIENT
  Age: 65 Year
  Sex: Female
  Weight: 96.9 kg

DRUGS (9)
  1. MYCOPHENOLATE MOFETIL [Suspect]
     Active Substance: MYCOPHENOLATE MOFETIL
     Indication: Autoimmune hepatitis
     Dosage: 500 MG BID ORAL ?
     Route: 048
     Dates: start: 20250815, end: 20250930
  2. LOSARTAN [Concomitant]
     Active Substance: LOSARTAN
  3. albuterol 90mcg HFA inhaler [Concomitant]
  4. ALPRAZOLAM [Concomitant]
     Active Substance: ALPRAZOLAM
  5. FEXOFENADINE HYDROCHLORIDE [Concomitant]
     Active Substance: FEXOFENADINE HYDROCHLORIDE
  6. OMEPRAZOLE [Concomitant]
     Active Substance: OMEPRAZOLE
  7. RISPERIDONE [Concomitant]
     Active Substance: RISPERIDONE
  8. ONDANSETRON [Concomitant]
     Active Substance: ONDANSETRON
  9. MYCOPHENOLATE MOFETIL [Suspect]
     Active Substance: MYCOPHENOLATE MOFETIL
     Indication: Autoimmune hepatitis
     Dosage: 500 MG BID ORAL ?
     Route: 048
     Dates: start: 20250815, end: 20250930

REACTIONS (8)
  - Balance disorder [None]
  - Nausea [None]
  - Vomiting [None]
  - Amnesia [None]
  - Pain [None]
  - Headache [None]
  - Blepharospasm [None]
  - Therapy cessation [None]

NARRATIVE: CASE EVENT DATE: 20250815
